FAERS Safety Report 23571358 (Version 1)
Quarter: 2024Q1

REPORT INFORMATION
  Report Type: Spontaneous
  Country: US (occurrence: None)
  Receive Date: 20240227
  Receipt Date: 20240227
  Transmission Date: 20240410
  Serious: No
  Sender: FDA-Public Use
  Company Number: None

PATIENT
  Age: 71 Year
  Sex: Female
  Weight: 108.41 kg

DRUGS (4)
  1. SIMPONI [Suspect]
     Active Substance: GOLIMUMAB
     Indication: Rheumatoid arthritis
     Dosage: FREQUENCY : MONTHLY;?
     Route: 058
     Dates: start: 201310
  2. SIMPONI [Suspect]
     Active Substance: GOLIMUMAB
     Indication: Rheumatoid arthritis
  3. MOUNJARO [Suspect]
     Active Substance: TIRZEPATIDE
     Indication: Rheumatoid arthritis
  4. MOUNJARO [Suspect]
     Active Substance: TIRZEPATIDE
     Indication: Rheumatoid arthritis

REACTIONS (3)
  - Dehydration [None]
  - Urinary tract infection [None]
  - Therapy cessation [None]
